FAERS Safety Report 4354906-2 (Version None)
Quarter: 2004Q2

REPORT INFORMATION
  Report Type: 
  Country: None (occurrence: None)
  Receive Date: 20040507
  Receipt Date: 20040429
  Transmission Date: 20050107
  Serious: Yes (Hospitalization)
  Sender: FDA-Public Use
  Company Number: DE-MERCK-0404DEU00171

PATIENT
  Age: 27 Year
  Sex: Female

DRUGS (1)
  1. VIOXX [Suspect]
     Indication: LIMB INJURY
     Route: 048
     Dates: start: 20040423, end: 20040427

REACTIONS (2)
  - DYSPNOEA [None]
  - SENSATION OF FOREIGN BODY [None]
